FAERS Safety Report 18428009 (Version 1)
Quarter: 2020Q4

REPORT INFORMATION
  Report Type: Spontaneous
  Country: None (occurrence: US)
  Receive Date: 20201026
  Receipt Date: 20201026
  Transmission Date: 20210114
  Serious: No
  Sender: FDA-Public Use
  Company Number: US-HORIZON-2020HZN00477

PATIENT
  Age: 32 Year
  Sex: Female

DRUGS (10)
  1. CARVEDILOL. [Concomitant]
     Active Substance: CARVEDILOL
  2. PREDNISONE. [Concomitant]
     Active Substance: PREDNISONE
  3. ASPARTIC ACID POWDER [Concomitant]
  4. TIZANIDINE HYDROCHLORIDE. [Concomitant]
     Active Substance: TIZANIDINE HYDROCHLORIDE
  5. VITAMIN D3 [Concomitant]
     Active Substance: CHOLECALCIFEROL
  6. PROCYSBI [Suspect]
     Active Substance: CYSTEAMINE BITARTRATE
     Indication: AMINO ACID METABOLISM DISORDER
     Dosage: 1050 MG BID 2 SEPARATED DOSES
  7. TACROLIMUS. [Concomitant]
     Active Substance: TACROLIMUS
  8. VALSARTAN. [Concomitant]
     Active Substance: VALSARTAN
  9. DOXYCYCLINE HYCLATE. [Concomitant]
     Active Substance: DOXYCYCLINE HYCLATE
  10. CYSTARAN [Concomitant]
     Active Substance: CYSTEAMINE HYDROCHLORIDE

REACTIONS (4)
  - Vomiting [Not Recovered/Not Resolved]
  - Skin odour abnormal [Not Recovered/Not Resolved]
  - Intentional product use issue [Not Recovered/Not Resolved]
  - Nausea [Not Recovered/Not Resolved]
